FAERS Safety Report 15527584 (Version 1)
Quarter: 2018Q4

REPORT INFORMATION
  Report Type: Report from Study
  Country: US (occurrence: US)
  Receive Date: 20181018
  Receipt Date: 20181018
  Transmission Date: 20190205
  Serious: No
  Sender: FDA-Public Use
  Company Number: US-AMGEN-USASL2018129653

PATIENT
  Age: 83 Year
  Sex: Male

DRUGS (1)
  1. REPATHA [Suspect]
     Active Substance: EVOLOCUMAB
     Indication: HYPERCHOLESTEROLAEMIA
     Dosage: 140 MG, Q2WK
     Route: 065
     Dates: start: 201806

REACTIONS (6)
  - Back pain [Not Recovered/Not Resolved]
  - Accidental exposure to product [Unknown]
  - Pain [Unknown]
  - Wrong technique in product usage process [Unknown]
  - Night sweats [Unknown]
  - Injury associated with device [Unknown]

NARRATIVE: CASE EVENT DATE: 2018
